FAERS Safety Report 7284399-7 (Version None)
Quarter: 2011Q1

REPORT INFORMATION
  Report Type: 
  Country: None (occurrence: None)
  Receive Date: 20110209
  Receipt Date: 20110201
  Transmission Date: 20110831
  Serious: Yes (Death)
  Sender: FDA-Public Use
  Company Number: US-GILEAD-2010-0032410

PATIENT
  Sex: Male
  Weight: 78.088 kg

DRUGS (12)
  1. ATENTOLOL [Concomitant]
  2. AZATHIOPRINE [Concomitant]
  3. SPIRONOLACTONE [Concomitant]
  4. PREDNISONE [Concomitant]
  5. METFORMIN [Concomitant]
  6. GABAPENTIN [Concomitant]
  7. MECLIZINE [Concomitant]
  8. LETAIRIS [Suspect]
     Indication: PULMONARY ARTERIAL HYPERTENSION
     Route: 048
     Dates: start: 20071201, end: 20100920
  9. REVATIO [Concomitant]
  10. GLIPIZIDE [Concomitant]
  11. FOLIC ACID [Concomitant]
  12. ASPIRIN [Concomitant]

REACTIONS (1)
  - RESPIRATORY FAILURE [None]
